FAERS Safety Report 5669151-8 (Version None)
Quarter: 2008Q1

REPORT INFORMATION
  Report Type: 
  Country: None (occurrence: None)
  Receive Date: 20080311
  Receipt Date: 20080311
  Transmission Date: 20080703
  Serious: Yes (Life-Threatening)
  Sender: FDA-Public Use
  Company Number: None

PATIENT
  Age: 33 Year
  Sex: Female
  Weight: 59.9 kg

DRUGS (1)
  1. APLISOL [Suspect]
     Indication: TUBERCULIN TEST
     Dosage: 0.1CC X1 ID
     Route: 026
     Dates: start: 20080307, end: 20080307

REACTIONS (4)
  - BLOOD GLUCOSE INCREASED [None]
  - DYSPNOEA [None]
  - PRURITUS [None]
  - RASH [None]
